FAERS Safety Report 10048743 (Version 2)
Quarter: 2015Q1

REPORT INFORMATION
  Report Type: Spontaneous
  Country: RO (occurrence: RO)
  Receive Date: 20140331
  Receipt Date: 20140331
  Transmission Date: 20150720
  Serious: Yes (Life-Threatening, Hospitalization)
  Sender: FDA-Public Use
  Company Number: RO-ACTAVIS-2014-05761

PATIENT
  Age: 81 Year
  Sex: Female

DRUGS (6)
  1. INDAPAMIDE (UNKNOWN) [Suspect]
     Active Substance: INDAPAMIDE
     Indication: MYOCARDIAL ISCHAEMIA
     Dosage: UNK
     Route: 065
  2. DILTIAZEM (UNKNOWN) [Suspect]
     Active Substance: DILTIAZEM
     Indication: MYOCARDIAL ISCHAEMIA
     Dosage: UNK
     Route: 065
  3. DILTIAZEM (UNKNOWN) [Suspect]
     Active Substance: DILTIAZEM
     Indication: HYPERTENSION
  4. INDAPAMIDE (UNKNOWN) [Suspect]
     Active Substance: INDAPAMIDE
     Indication: HYPERTENSION
     Dosage: 24 MG, SINGLE
     Route: 048
  5. INDAPAMIDE (UNKNOWN) [Suspect]
     Active Substance: INDAPAMIDE
     Indication: SUICIDE ATTEMPT
  6. DILTIAZEM (UNKNOWN) [Suspect]
     Active Substance: DILTIAZEM
     Indication: SUICIDE ATTEMPT
     Dosage: 5760 MG, SINGLE
     Route: 048

REACTIONS (6)
  - Coma [Recovered/Resolved]
  - Suicide attempt [Recovered/Resolved]
  - Atrioventricular block second degree [Recovered/Resolved]
  - Metabolic acidosis [Recovered/Resolved]
  - Overdose [Recovered/Resolved]
  - Sinus bradycardia [Recovered/Resolved]
